FAERS Safety Report 5347398-8 (Version None)
Quarter: 2007Q2

REPORT INFORMATION
  Report Type: 
  Country: None (occurrence: None)
  Receive Date: 20070507
  Receipt Date: 20061111
  Transmission Date: 20071010
  Serious: Yes (Other)
  Sender: FDA-Public Use
  Company Number: PIR# 0611001

PATIENT
  Age: 67 Year
  Sex: Male

DRUGS (1)
  1. LIDOCAINE [Suspect]
     Dosage: IV
     Route: 042

REACTIONS (1)
  - DIZZINESS [None]
